FAERS Safety Report 22142499 (Version 1)
Quarter: 2023Q1

REPORT INFORMATION
  Report Type: Spontaneous
  Country: US (occurrence: US)
  Receive Date: 20230327
  Receipt Date: 20230327
  Transmission Date: 20230417
  Serious: Yes (Death)
  Sender: FDA-Public Use
  Company Number: US-002147023-NVSC2023US070194

PATIENT
  Sex: Female

DRUGS (1)
  1. PIQRAY [Suspect]
     Active Substance: ALPELISIB
     Indication: Breast cancer
     Dosage: UNK
     Route: 048

REACTIONS (2)
  - Oncologic complication [Fatal]
  - Hyperglycaemia [Fatal]

NARRATIVE: CASE EVENT DATE: 20221201
